FAERS Safety Report 6168135-3 (Version None)
Quarter: 2009Q2

REPORT INFORMATION
  Report Type: 
  Country: None (occurrence: None)
  Receive Date: 20090423
  Receipt Date: 20090423
  Transmission Date: 20091009
  Serious: Yes (Other)
  Sender: FDA-Public Use
  Company Number: None

PATIENT
  Age: 26 Year
  Sex: Male
  Weight: 90.7194 kg

DRUGS (1)
  1. MIDRIN [Suspect]
     Indication: TENSION HEADACHE
     Dosage: 1000MG PRN PO
     Route: 048
     Dates: start: 20071001, end: 20071231

REACTIONS (2)
  - DYSURIA [None]
  - ERECTILE DYSFUNCTION [None]
